FAERS Safety Report 16314145 (Version 1)
Quarter: 2019Q2

REPORT INFORMATION
  Report Type: Spontaneous
  Country: DE (occurrence: DE)
  Receive Date: 20190515
  Receipt Date: 20190515
  Transmission Date: 20190711
  Serious: Yes (Other)
  Sender: FDA-Public Use
  Company Number: PHHY2019DE106968

PATIENT
  Age: 16 Year
  Sex: Male

DRUGS (1)
  1. ILARIS [Suspect]
     Active Substance: CANAKINUMAB
     Indication: IMMUNISATION
     Dosage: 300 MG, Q4W (DAILY DOSE: 300 MG MILLGRAM(S) EVERY 4 WEEKS)
     Route: 058
     Dates: start: 201712

REACTIONS (1)
  - Psoriasis [Not Recovered/Not Resolved]

NARRATIVE: CASE EVENT DATE: 201902
